FAERS Safety Report 6966862-9 (Version None)
Quarter: 2010Q3

REPORT INFORMATION
  Report Type: 
  Country: None (occurrence: None)
  Receive Date: 20100906
  Receipt Date: 20100826
  Transmission Date: 20110219
  Serious: Yes (Other)
  Sender: FDA-Public Use
  Company Number: PHHY2010US34063

PATIENT
  Sex: Male

DRUGS (9)
  1. EXTAVIA [Suspect]
     Indication: MULTIPLE SCLEROSIS
     Dosage: 0.25 MG, QOD
     Route: 058
     Dates: start: 20100202
  2. BACLOFEN [Concomitant]
     Dosage: 20 MG, QID
  3. BETASERON [Concomitant]
     Dosage: UNK
     Dates: start: 20100101
  4. GEODON [Concomitant]
     Dosage: 40 MG, QD
  5. GEODON [Concomitant]
     Dosage: 60 MG, QD
  6. ZOLOFT [Concomitant]
     Dosage: 150 MG, QD
  7. LYRICA [Concomitant]
     Dosage: 50 MG, TID
  8. MECLIZINE [Concomitant]
     Dosage: 75 MG, QD
  9. ALEVE [Concomitant]
     Dosage: 400 MG, PRN

REACTIONS (15)
  - ALTERED STATE OF CONSCIOUSNESS [None]
  - BRADYCARDIA [None]
  - CENTRAL NERVOUS SYSTEM LESION [None]
  - DIZZINESS [None]
  - DYSGEUSIA [None]
  - FALL [None]
  - FATIGUE [None]
  - GAIT DISTURBANCE [None]
  - MALAISE [None]
  - MEMORY IMPAIRMENT [None]
  - MOOD SWINGS [None]
  - PAIN IN EXTREMITY [None]
  - PARTIAL SEIZURES [None]
  - SPEECH DISORDER [None]
  - STRESS [None]
